FAERS Safety Report 15632541 (Version 1)
Quarter: 2018Q4

REPORT INFORMATION
  Report Type: Spontaneous
  Country: TN (occurrence: TN)
  Receive Date: 20181119
  Receipt Date: 20181119
  Transmission Date: 20190205
  Serious: Yes (Other)
  Sender: FDA-Public Use
  Company Number: TN-JUBILANT CADISTA PHARMACEUTICALS-2018JUB00464

PATIENT
  Age: 66 Year
  Sex: Female

DRUGS (4)
  1. LEVOFLOXACIN. [Suspect]
     Active Substance: LEVOFLOXACIN
     Indication: URINARY TRACT INFECTION
     Dosage: 500 MG, 1X/DAY
     Route: 065
     Dates: start: 20170714
  2. FENOFIBRATE. [Suspect]
     Active Substance: FENOFIBRATE
     Indication: DYSLIPIDAEMIA
     Dosage: UNK
     Route: 065
     Dates: start: 2007
  3. COLCHICINE. [Suspect]
     Active Substance: COLCHICINE
     Dosage: 1 MG, 1X/DAY
     Route: 065
     Dates: start: 20170714
  4. COLCHICINE. [Suspect]
     Active Substance: COLCHICINE
     Dosage: DOSE WAS HALVED
     Route: 065

REACTIONS (2)
  - Rhabdomyolysis [Recovered/Resolved]
  - Potentiating drug interaction [Recovered/Resolved]

NARRATIVE: CASE EVENT DATE: 201707
